FAERS Safety Report 4482940-0 (Version None)
Quarter: 2004Q3

REPORT INFORMATION
  Report Type: 
  Country: None (occurrence: None)
  Receive Date: 20040921
  Receipt Date: 20040630
  Transmission Date: 20050211
  Serious: Yes (Death, Hospitalization)
  Sender: FDA-Public Use
  Company Number: 163-20785-04070093(0)

PATIENT
  Age: 62 Year
  Sex: Female

DRUGS (7)
  1. THALOMID [Suspect]
     Indication: BLADDER CANCER
     Dosage: 150 MG, DAILY, ORAL
     Route: 048
     Dates: start: 20030718, end: 20040101
  2. POTASSIUM (POTASSIUM) [Concomitant]
  3. TOPROL XL (METOPROLOL SUCCINATE) (TABLETS) [Concomitant]
  4. PRILOSEC [Concomitant]
  5. LASIX [Concomitant]
  6. SPIRONOLACTONE [Concomitant]
  7. QUESTRAN [Concomitant]

REACTIONS (5)
  - DEATH [None]
  - DISEASE PROGRESSION [None]
  - METASTASES TO ABDOMINAL CAVITY [None]
  - OBSTRUCTION [None]
  - RENAL FAILURE [None]
